FAERS Safety Report 7967550-2 (Version None)
Quarter: 2011Q4

REPORT INFORMATION
  Report Type: 
  Country: None (occurrence: None)
  Receive Date: 20111209
  Receipt Date: 20111129
  Transmission Date: 20120403
  Serious: Yes (Hospitalization)
  Sender: FDA-Public Use
  Company Number: FR-VERTEX PHARMACEUTICALS INC.-AE-2011-004445

PATIENT
  Sex: Male

DRUGS (5)
  1. PEGINTERFERON ALFA-2A [Concomitant]
     Indication: HEPATITIS C
     Route: 058
  2. PEGINTERFERON ALFA-2A [Concomitant]
     Route: 058
  3. RIBAVIRIN [Concomitant]
     Indication: HEPATITIS C
     Route: 048
  4. RIBAVIRIN [Concomitant]
     Route: 048
  5. VX-950 [Suspect]
     Indication: HEPATITIS C
     Route: 048
     Dates: start: 20110916, end: 20111101

REACTIONS (3)
  - ECZEMA [None]
  - STAPHYLOCOCCAL INFECTION [None]
  - PURPURA [None]
